FAERS Safety Report 10033870 (Version 1)
Quarter: 2014Q1

REPORT INFORMATION
  Report Type: Spontaneous
  Country: AR (occurrence: AR)
  Receive Date: 20140325
  Receipt Date: 20140325
  Transmission Date: 20141002
  Serious: Yes (Other)
  Sender: FDA-Public Use
  Company Number: AR-AMGEN-ARGSP2014021053

PATIENT
  Age: 52 Year
  Sex: Female

DRUGS (2)
  1. ENBREL [Suspect]
     Indication: RHEUMATOID ARTHRITIS
     Dosage: 50 MG, WEEKLY
     Route: 065
     Dates: start: 20130507
  2. METHOTREXATE [Concomitant]
     Dosage: UNK

REACTIONS (10)
  - Diabetes mellitus [Unknown]
  - Cyst [Not Recovered/Not Resolved]
  - Hyperglycaemia [Unknown]
  - Hepatic enzyme increased [Not Recovered/Not Resolved]
  - Nervousness [Not Recovered/Not Resolved]
  - Anger [Not Recovered/Not Resolved]
  - Myalgia [Unknown]
  - Bedridden [Not Recovered/Not Resolved]
  - Paraesthesia [Not Recovered/Not Resolved]
  - Furuncle [Not Recovered/Not Resolved]
